FAERS Safety Report 14120642 (Version 1)
Quarter: 2017Q4

REPORT INFORMATION
  Report Type: Report from Study
  Country: AT (occurrence: AT)
  Receive Date: 20171024
  Receipt Date: 20171024
  Transmission Date: 20180321
  Serious: Yes (Other)
  Sender: FDA-Public Use
  Company Number: AT-JNJFOC-20171014601

PATIENT
  Sex: Male

DRUGS (3)
  1. ZYTIGA [Suspect]
     Active Substance: ABIRATERONE ACETATE
     Indication: PROSTATE CANCER METASTATIC
     Route: 048
     Dates: start: 2017
  2. PREDNISOLONE. [Suspect]
     Active Substance: PREDNISOLONE
     Indication: PROSTATE CANCER METASTATIC
     Route: 065
     Dates: start: 2017, end: 2017
  3. PREDNISOLONE. [Suspect]
     Active Substance: PREDNISOLONE
     Indication: PROSTATE CANCER METASTATIC
     Route: 065
     Dates: start: 2017

REACTIONS (3)
  - Hyperkalaemia [Recovered/Resolved]
  - Off label use [Unknown]
  - Product use in unapproved indication [Unknown]

NARRATIVE: CASE EVENT DATE: 2017
